FAERS Safety Report 12610287 (Version 1)
Quarter: 2016Q3

REPORT INFORMATION
  Report Type: Report from Study
  Country: FR (occurrence: FR)
  Receive Date: 20160801
  Receipt Date: 20160801
  Transmission Date: 20161109
  Serious: Yes (Hospitalization)
  Sender: FDA-Public Use
  Company Number: FR-PFIZER INC-2016157171

PATIENT
  Age: 27 Year
  Sex: Male
  Weight: 67 kg

DRUGS (12)
  1. METHOTREXATE SODIUM. [Suspect]
     Active Substance: METHOTREXATE SODIUM
     Dosage: 37.5 MG, WEEKLY
     Route: 048
     Dates: end: 201209
  2. METHOTREXATE SODIUM. [Suspect]
     Active Substance: METHOTREXATE SODIUM
     Dosage: 25 MG, WEEKLY
     Route: 058
     Dates: start: 201209, end: 201302
  3. ETANERCEPT [Suspect]
     Active Substance: ETANERCEPT
     Dosage: 50 MG, WEEKLY
     Route: 058
     Dates: start: 20140410, end: 201405
  4. CICLOSPORINE [Suspect]
     Active Substance: CYCLOSPORINE
     Indication: PSORIASIS
     Dosage: 250 MG, DAILY
     Route: 048
     Dates: start: 20141202, end: 20151112
  5. ETANERCEPT [Suspect]
     Active Substance: ETANERCEPT
     Indication: PSORIASIS
     Dosage: 50 MG, 2X/WEEK
     Route: 058
     Dates: start: 20140123, end: 201404
  6. METHOTREXATE SODIUM. [Suspect]
     Active Substance: METHOTREXATE SODIUM
     Dosage: 10 MG, WEEKLY
     Route: 058
     Dates: start: 201309, end: 201311
  7. STELARA [Concomitant]
     Active Substance: USTEKINUMAB
     Indication: PSORIASIS
     Dosage: 45 MG EVERY 12 WEEKS
     Route: 058
     Dates: start: 20151202
  8. METHOTREXATE SODIUM. [Suspect]
     Active Substance: METHOTREXATE SODIUM
     Dosage: 25 MG, WEEKLY
     Route: 048
  9. METHOTREXATE SODIUM. [Suspect]
     Active Substance: METHOTREXATE SODIUM
     Dosage: 15 MG, WEEKLY
     Route: 058
     Dates: start: 20131121, end: 201401
  10. HUMIRA [Suspect]
     Active Substance: ADALIMUMAB
     Indication: PSORIASIS
     Dosage: 40 MG EVERY 2 WEEKS
     Route: 058
     Dates: start: 20130530, end: 201401
  11. SORIATANE [Suspect]
     Active Substance: ACITRETIN
     Indication: PSORIASIS
     Dosage: 25 MG, DAILY
     Route: 048
     Dates: start: 20130211, end: 201305
  12. METHOTREXATE SODIUM. [Suspect]
     Active Substance: METHOTREXATE SODIUM
     Indication: PSORIASIS
     Dosage: 20 MG, WEEKLY
     Route: 048
     Dates: start: 2010

REACTIONS (1)
  - Multiple sclerosis [Unknown]

NARRATIVE: CASE EVENT DATE: 20151115
